FAERS Safety Report 23543557 (Version 1)
Quarter: 2024Q1

REPORT INFORMATION
  Report Type: Spontaneous
  Country: US (occurrence: US)
  Receive Date: 20240220
  Receipt Date: 20240220
  Transmission Date: 20240410
  Serious: Yes (Other)
  Sender: FDA-Public Use
  Company Number: US-PROCTER_AND_GAMBLE-GS24016654

PATIENT
  Age: 58 Year
  Sex: Female

DRUGS (1)
  1. SECRET POWDER FRESH ANTIPERSPIRANT AND DEODORANT WIDE [Suspect]
     Active Substance: ALUMINUM ZIRCONIUM PENTACHLOROHYDREX GLY
     Dosage: UNK
     Dates: start: 202310

REACTIONS (4)
  - Tooth fracture [Recovering/Resolving]
  - Tooth disorder [Unknown]
  - Product package associated injury [Unknown]
  - Product packaging issue [Unknown]

NARRATIVE: CASE EVENT DATE: 20231001
